FAERS Safety Report 4296851-7 (Version None)
Quarter: 2004Q1

REPORT INFORMATION
  Report Type: 
  Country: None (occurrence: None)
  Receive Date: 20040126
  Receipt Date: 20030827
  Transmission Date: 20041129
  Serious: No
  Sender: FDA-Public Use
  Company Number: USA030845567

PATIENT
  Sex: Female

DRUGS (3)
  1. STRATTERA [Suspect]
     Indication: ATTENTION DEFICIT/HYPERACTIVITY DISORDER
     Dosage: 20 MG/DAY
     Dates: end: 20030824
  2. EFFEXOR [Concomitant]
  3. PAXIL [Concomitant]

REACTIONS (8)
  - ASTHENIA [None]
  - HEADACHE [None]
  - NAUSEA [None]
  - OBSESSIVE THOUGHTS [None]
  - PHARYNGOLARYNGEAL PAIN [None]
  - PYREXIA [None]
  - RASH [None]
  - TOOTHACHE [None]
